FAERS Safety Report 6343767-8 (Version None)
Quarter: 2009Q3

REPORT INFORMATION
  Report Type: 
  Country: None (occurrence: None)
  Receive Date: 20090908
  Receipt Date: 20090831
  Transmission Date: 20100115
  Serious: Yes (Other)
  Sender: FDA-Public Use
  Company Number: B0585777A

PATIENT
  Age: 60 Year
  Sex: Female

DRUGS (2)
  1. TYKERB [Suspect]
     Indication: BREAST CANCER
     Dosage: 1250MG PER DAY
     Route: 048
     Dates: start: 20090716
  2. XELODA [Suspect]
     Indication: DRUG USE FOR UNKNOWN INDICATION
     Dosage: 2500MG PER DAY
     Route: 048
     Dates: start: 20090716

REACTIONS (2)
  - DARK CIRCLES UNDER EYES [None]
  - PALMAR-PLANTAR ERYTHRODYSAESTHESIA SYNDROME [None]
